FAERS Safety Report 8718681 (Version 2)
Quarter: 2013Q1

REPORT INFORMATION
  Report Type: Spontaneous
  Country: US (occurrence: US)
  Receive Date: 20120810
  Receipt Date: 20130326
  Transmission Date: 20140127
  Serious: No
  Sender: FDA-Public Use
  Company Number: US-ASTRAZENECA-2012SE19172

PATIENT
  Age: 77 Year
  Sex: Female

DRUGS (1)
  1. ARIMIDEX [Suspect]
     Route: 048

REACTIONS (4)
  - Nasopharyngitis [Unknown]
  - Nail ridging [Unknown]
  - Osteopenia [Unknown]
  - Night sweats [Unknown]
